FAERS Safety Report 9482047 (Version 1)
Quarter: 2013Q3

REPORT INFORMATION
  Report Type: Spontaneous
  Country: US (occurrence: US)
  Receive Date: 20130828
  Receipt Date: 20130828
  Transmission Date: 20140515
  Serious: Yes (Hospitalization)
  Sender: FDA-Public Use
  Company Number: US-ASTRAZENECA-2013SE64572

PATIENT
  Age: 75 Year
  Sex: Male
  Weight: 96.2 kg

DRUGS (8)
  1. LISINOPRIL [Suspect]
     Route: 048
  2. CRESTOR [Suspect]
     Indication: BLOOD CHOLESTEROL ABNORMAL
     Route: 048
     Dates: start: 201112, end: 20130818
  3. ASPIRIN [Concomitant]
     Dosage: 81 MG OR 325 MG DAILY
     Route: 048
  4. COREG [Concomitant]
     Route: 048
  5. NIACIN [Concomitant]
  6. PLAVIX [Concomitant]
     Indication: ANTICOAGULANT THERAPY
     Dates: start: 2003
  7. FOSAMAX [Concomitant]
  8. ZANTAC [Concomitant]

REACTIONS (7)
  - Ventricular tachycardia [Unknown]
  - Pain in extremity [Not Recovered/Not Resolved]
  - Muscular weakness [Not Recovered/Not Resolved]
  - Musculoskeletal pain [Not Recovered/Not Resolved]
  - Arthralgia [Not Recovered/Not Resolved]
  - Gastrooesophageal reflux disease [Unknown]
  - Osteoporosis [Unknown]
